FAERS Safety Report 9283387 (Version 1)
Quarter: 2013Q2

REPORT INFORMATION
  Report Type: Spontaneous
  Country: US (occurrence: US)
  Receive Date: 20130510
  Receipt Date: 20130510
  Transmission Date: 20140414
  Serious: No
  Sender: FDA-Public Use
  Company Number: US-GLAXOSMITHKLINE-A1003289A

PATIENT
  Age: 42 Year
  Sex: Female

DRUGS (10)
  1. TYKERB [Suspect]
     Indication: BREAST CANCER
     Dosage: 750MG PER DAY
     Route: 048
     Dates: start: 20100324
  2. TRASTUZUMAB [Suspect]
     Indication: BREAST CANCER
     Dosage: 6MGK UNKNOWN
     Route: 042
  3. AMBIEN [Concomitant]
  4. LORAZEPAM [Concomitant]
  5. FEMARA [Concomitant]
  6. IBUPROFEN [Concomitant]
  7. FLUOCINOLONE [Concomitant]
  8. ACETONIDE TRIAMCINOLONE [Concomitant]
  9. COLACE [Concomitant]
  10. EFFEXOR [Concomitant]

REACTIONS (2)
  - Supraventricular tachycardia [Not Recovered/Not Resolved]
  - Ejection fraction decreased [Unknown]
